FAERS Safety Report 13422871 (Version 1)
Quarter: 2017Q2

REPORT INFORMATION
  Report Type: Spontaneous
  Country: US (occurrence: US)
  Receive Date: 20170410
  Receipt Date: 20170410
  Transmission Date: 20170830
  Serious: Yes (Hospitalization)
  Sender: FDA-Public Use
  Company Number: None

PATIENT
  Age: 60 Year
  Sex: Male
  Weight: 137.89 kg

DRUGS (2)
  1. TOPIRAMATE. [Suspect]
     Active Substance: TOPIRAMATE
     Indication: FIBROMYALGIA
     Route: 048
     Dates: start: 20160929
  2. TOPIRAMATE. [Suspect]
     Active Substance: TOPIRAMATE
     Indication: OBESITY
     Route: 048
     Dates: start: 20160929

REACTIONS (16)
  - Hypoaesthesia [None]
  - Hypotension [None]
  - Disturbance in attention [None]
  - Feeling abnormal [None]
  - Pain [None]
  - Sedation [None]
  - Facial paralysis [None]
  - Headache [None]
  - Confusional state [None]
  - Fatigue [None]
  - Cognitive disorder [None]
  - Memory impairment [None]
  - Dizziness [None]
  - Neuropathy peripheral [None]
  - Dysarthria [None]
  - Paraesthesia [None]

NARRATIVE: CASE EVENT DATE: 20170331
